FAERS Safety Report 5742709-3 (Version None)
Quarter: 2008Q2

REPORT INFORMATION
  Report Type: 
  Country: None (occurrence: None)
  Receive Date: 20080519
  Receipt Date: 20080513
  Transmission Date: 20081010
  Serious: Yes (Life-Threatening)
  Sender: FDA-Public Use
  Company Number: B0515038A

PATIENT
  Age: 85 Year
  Sex: Female

DRUGS (7)
  1. ARIXTRA [Suspect]
     Indication: THROMBOSIS PROPHYLAXIS
     Dosage: 1.5MG PER DAY
     Route: 058
     Dates: start: 20080327, end: 20080331
  2. FERROMIA [Concomitant]
     Dosage: 150MG PER DAY
     Route: 048
  3. FUROSEMIDE [Concomitant]
     Indication: HYPERTENSION
     Dosage: 40MG PER DAY
     Route: 048
  4. NORVASC [Concomitant]
     Indication: HYPERTENSION
     Dosage: .25MG PER DAY
     Route: 048
  5. SLOW-K [Concomitant]
     Dosage: 1800MG PER DAY
     Route: 048
  6. ALLOPURINOL [Concomitant]
     Dosage: 200MG PER DAY
     Route: 048
  7. LOXONIN [Concomitant]
     Indication: ANALGESIA
     Dosage: 120MG PER DAY
     Route: 048
     Dates: start: 20080327, end: 20080404

REACTIONS (2)
  - ANAEMIA [None]
  - OEDEMA PERIPHERAL [None]
